FAERS Safety Report 4896343-8 (Version None)
Quarter: 2006Q1

REPORT INFORMATION
  Report Type: 
  Country: None (occurrence: None)
  Receive Date: 20060126
  Receipt Date: 20051208
  Transmission Date: 20060701
  Serious: Yes (Disabling)
  Sender: FDA-Public Use
  Company Number: 200510882

PATIENT
  Age: 60 Year
  Sex: Male

DRUGS (1)
  1. BOTOX [Suspect]
     Indication: GASTROINTESTINAL DISORDER
     Dosage: 30 UNITS ONCE IM
     Route: 030
     Dates: start: 20051101

REACTIONS (3)
  - BORRELIA INFECTION [None]
  - DEAFNESS UNILATERAL [None]
  - HYPOACUSIS [None]
